FAERS Safety Report 5196012-3 (Version None)
Quarter: 2006Q4

REPORT INFORMATION
  Report Type: 
  Country: None (occurrence: None)
  Receive Date: 20061227
  Receipt Date: 20061227
  Transmission Date: 20070319
  Serious: Yes (Hospitalization)
  Sender: FDA-Public Use
  Company Number: None

PATIENT
  Age: 19 Year
  Sex: Female
  Weight: 60 kg

DRUGS (1)
  1. PROMETHAZINE [Suspect]
     Indication: SICKLE CELL ANAEMIA
     Dosage: 12.5 MG IVP
     Route: 042
     Dates: start: 20061104

REACTIONS (1)
  - NECROSIS [None]
